FAERS Safety Report 8155400-3 (Version None)
Quarter: 2012Q1

REPORT INFORMATION
  Report Type: 
  Country: None (occurrence: None)
  Receive Date: 20120222
  Receipt Date: 20120216
  Transmission Date: 20120608
  Serious: Yes (Death, Hospitalization)
  Sender: FDA-Public Use
  Company Number: US-GE HEALTHCARE MEDICAL DIAGNOSTICS-VISP-PR-1112L-0531

PATIENT
  Age: 49 Year
  Sex: Female

DRUGS (2)
  1. VISIPAQUE [Suspect]
     Indication: SICKLE CELL ANAEMIA
     Route: 042
     Dates: start: 20000101, end: 20060630
  2. VISIPAQUE [Suspect]
     Indication: DIAGNOSTIC PROCEDURE

REACTIONS (8)
  - PULSELESS ELECTRICAL ACTIVITY [None]
  - DIARRHOEA [None]
  - HYPOTENSION [None]
  - TACHYCARDIA [None]
  - ABDOMINAL PAIN [None]
  - NAUSEA [None]
  - CARDIOMYOPATHY [None]
  - RESPIRATORY DISTRESS [None]
